FAERS Safety Report 6354318-6 (Version None)
Quarter: 2009Q3

REPORT INFORMATION
  Report Type: 
  Country: None (occurrence: None)
  Receive Date: 20090914
  Receipt Date: 20070525
  Transmission Date: 20100115
  Serious: Yes (Hospitalization, Other)
  Sender: FDA-Public Use
  Company Number: US-ASTRAZENECA-2006UW22868

PATIENT
  Age: 16002 Day
  Sex: Male
  Weight: 82.1 kg

DRUGS (12)
  1. SEROQUEL [Suspect]
     Indication: DEPRESSION
     Dosage: 100 MG
     Route: 048
     Dates: start: 20010801
  2. SEROQUEL [Suspect]
     Indication: PAIN
     Dosage: 100 MG
     Route: 048
     Dates: start: 20010801
  3. SEROQUEL [Suspect]
     Indication: ANXIETY
     Dosage: 100 MG
     Route: 048
     Dates: start: 20010801
  4. SEROQUEL [Suspect]
     Indication: DEPENDENCE
     Dosage: 100 MG
     Route: 048
     Dates: start: 20010801
  5. SEROQUEL [Suspect]
     Dosage: 50-100 MG
     Route: 048
     Dates: start: 20020327
  6. SEROQUEL [Suspect]
     Dosage: 50-100 MG
     Route: 048
     Dates: start: 20020327
  7. SEROQUEL [Suspect]
     Dosage: 50-100 MG
     Route: 048
     Dates: start: 20020327
  8. SEROQUEL [Suspect]
     Dosage: 50-100 MG
     Route: 048
     Dates: start: 20020327
  9. HYDROXYZINE [Concomitant]
     Dosage: 25 MG
  10. NORVASC [Concomitant]
     Indication: HYPERTENSION
     Route: 048
     Dates: start: 20020318, end: 20020701
  11. TRAZODONE [Concomitant]
     Dosage: 150-300 MG
     Route: 048
     Dates: start: 20020610
  12. NEURONTIN [Concomitant]
     Dosage: 900-2700 MG
     Route: 048
     Dates: start: 20020327

REACTIONS (9)
  - DIABETES MELLITUS [None]
  - DIABETES MELLITUS INADEQUATE CONTROL [None]
  - DIABETIC KETOACIDOSIS [None]
  - GLUCOSE TOLERANCE IMPAIRED [None]
  - HYPERGLYCAEMIA [None]
  - MULTIPLE INJURIES [None]
  - NEUROPATHY PERIPHERAL [None]
  - PANCREATITIS [None]
  - TYPE 2 DIABETES MELLITUS [None]
